FAERS Safety Report 17942947 (Version 1)
Quarter: 2020Q2

REPORT INFORMATION
  Report Type: Spontaneous
  Country: US (occurrence: US)
  Receive Date: 20200625
  Receipt Date: 20200625
  Transmission Date: 20200714
  Serious: Yes (Other)
  Sender: FDA-Public Use
  Company Number: None

PATIENT
  Age: 58 Year
  Sex: Male
  Weight: 89 kg

DRUGS (1)
  1. REMDESIVIR. [Suspect]
     Active Substance: REMDESIVIR
     Dates: start: 20200620, end: 20200622

REACTIONS (3)
  - Therapy cessation [None]
  - Acute kidney injury [None]
  - Liver function test increased [None]

NARRATIVE: CASE EVENT DATE: 20200622
